FAERS Safety Report 11024568 (Version 1)
Quarter: 2015Q2

REPORT INFORMATION
  Report Type: Report from Study
  Country: JP (occurrence: JP)
  Receive Date: 20150414
  Receipt Date: 20150414
  Transmission Date: 20150821
  Serious: Yes (Death)
  Sender: FDA-Public Use
  Company Number: JP-ROCHE-1563783

PATIENT

DRUGS (3)
  1. TRASTUZUMAB [Suspect]
     Active Substance: TRASTUZUMAB
     Indication: GASTRIC CANCER
     Dosage: (COURSE 1, 8 MG/KG; COURSE 2 ONWARD, 6 MG /KG) INTRAVENOUSLY ON DAY 1 OF A 21-DAY CYCLE
     Route: 042
  2. GIMERACIL\OTERACIL\TEGAFUR [Suspect]
     Active Substance: GIMERACIL\OTERACIL\TEGAFUR
     Indication: GASTRIC CANCER
     Dosage: (80-120MG PER DAY) ORALLY ON DAYS 1-28 OF A 42-DAY CYCLE
     Route: 048
  3. TRASTUZUMAB [Suspect]
     Active Substance: TRASTUZUMAB
     Dosage: (COURSE 1, 8 MG/KG; COURSE 2 ONWARD, 6 MG /KG) INTRAVENOUSLY ON DAY 1 OF A 21-DAY CYCLE.
     Route: 042

REACTIONS (1)
  - Death [Fatal]
